FAERS Safety Report 10248440 (Version 1)
Quarter: 2014Q2

REPORT INFORMATION
  Report Type: Spontaneous
  Country: US (occurrence: US)
  Receive Date: 20140620
  Receipt Date: 20140620
  Transmission Date: 20141212
  Serious: No
  Sender: FDA-Public Use
  Company Number: US-BIOGENIDEC-2014BI027809

PATIENT
  Age: 59 Year
  Sex: Female

DRUGS (8)
  1. TECFIDERA [Suspect]
     Indication: MULTIPLE SCLEROSIS
     Route: 048
     Dates: start: 20140305
  2. ADDERALL [Concomitant]
  3. AMPYRA [Concomitant]
  4. ASPIR-81 [Concomitant]
  5. ATORVASTATIN CALCIUM [Concomitant]
  6. GLIPIZIDE XL [Concomitant]
  7. LANTUS SOLOSTAR [Concomitant]
  8. METFORMIN HCI [Concomitant]

REACTIONS (2)
  - Asthenia [Unknown]
  - Flushing [Unknown]
